FAERS Safety Report 17906632 (Version 1)
Quarter: 2020Q2

REPORT INFORMATION
  Report Type: Spontaneous
  Country: US (occurrence: US)
  Receive Date: 20200616
  Receipt Date: 20200616
  Transmission Date: 20200714
  Serious: No
  Sender: FDA-Public Use
  Company Number: US-ROCHE-2567554

PATIENT
  Sex: Female
  Weight: 24.9 kg

DRUGS (1)
  1. ACTEMRA [Suspect]
     Active Substance: TOCILIZUMAB
     Indication: STILL^S DISEASE
     Dosage: GIVEN EVERY THREE WEEKS ;ONGOING: YES
     Route: 058

REACTIONS (5)
  - Intentional product misuse [Unknown]
  - No adverse event [Unknown]
  - Product storage error [Unknown]
  - Off label use [Unknown]
  - Product dose omission [Unknown]
